FAERS Safety Report 10949462 (Version 2)
Quarter: 2015Q1

REPORT INFORMATION
  Report Type: Spontaneous
  Country: CH (occurrence: CH)
  Receive Date: 20150324
  Receipt Date: 20150327
  Transmission Date: 20150721
  Serious: Yes (Death)
  Sender: FDA-Public Use
  Company Number: CH-PFIZER INC-2015098428

PATIENT
  Age: 66 Year
  Sex: Male

DRUGS (14)
  1. REMERON [Concomitant]
     Active Substance: MIRTAZAPINE
     Dosage: UNK
     Dates: start: 20140114, end: 20150116
  2. GAVISCON [Concomitant]
     Active Substance: ALUMINUM HYDROXIDE\MAGNESIUM CARBONATE
     Dosage: UNK
     Dates: end: 20150116
  3. TOREM [Concomitant]
     Active Substance: TORSEMIDE
     Dosage: UNK
     Dates: start: 20141121, end: 20150116
  4. DIFLUCAN [Suspect]
     Active Substance: FLUCONAZOLE
     Indication: OESOPHAGEAL CANDIDIASIS
     Dosage: 150 MG, 1X/DAY
     Dates: start: 20150107, end: 20150107
  5. ADALAT [Concomitant]
     Active Substance: NIFEDIPINE
     Dosage: 10 MG, EVERY 4 HRS
     Route: 048
     Dates: start: 20141121, end: 20150116
  6. SANDIMMUN NEORAL [Interacting]
     Active Substance: CYCLOSPORINE
     Indication: RENAL TRANSPLANT
     Dosage: 25 MG, 2X/DAY
     Dates: start: 20141121, end: 20150122
  7. CELLCEPT [Concomitant]
     Active Substance: MYCOPHENOLATE MOFETIL\MYCOPHENOLATE MOFETIL HYDROCHLORIDE
     Dosage: UNK
     Dates: start: 20141121, end: 20150116
  8. PANTOZOL [Concomitant]
     Active Substance: PANTOPRAZOLE SODIUM
     Dosage: UNK
     Dates: start: 20141121, end: 20150116
  9. CORDARONE [Interacting]
     Active Substance: AMIODARONE HYDROCHLORIDE
     Indication: CORONARY ARTERY DISEASE
     Dosage: 200 MG, 1X/DAY
     Dates: start: 20141121, end: 20150116
  10. VI-DE 3 [Concomitant]
     Dosage: UNK
     Dates: start: 20141121
  11. INEGY [Interacting]
     Active Substance: EZETIMIBE\SIMVASTATIN
     Indication: CORONARY ARTERY DISEASE
     Dosage: 1 DF, 1X/DAY
     Route: 048
     Dates: start: 20141121, end: 20150107
  12. BELOC [Concomitant]
     Active Substance: METOPROLOL TARTRATE
     Dosage: UNK
     Dates: start: 20141121, end: 20150116
  13. ALLOPUR [Concomitant]
     Active Substance: ALLOPURINOL
     Dosage: UNK
     Dates: start: 20141121, end: 20150116
  14. ZYLORIC [Concomitant]
     Active Substance: ALLOPURINOL
     Dosage: UNK
     Dates: end: 20150116

REACTIONS (3)
  - Rhabdomyolysis [Fatal]
  - Drug interaction [Fatal]
  - Medication error [Fatal]

NARRATIVE: CASE EVENT DATE: 20141121
